FAERS Safety Report 11777028 (Version 1)
Quarter: 2015Q4

REPORT INFORMATION
  Report Type: Spontaneous
  Country: US (occurrence: US)
  Receive Date: 20151125
  Receipt Date: 20151125
  Transmission Date: 20160304
  Serious: No
  Sender: FDA-Public Use
  Company Number: US-ASTRAZENECA-2015SF06575

PATIENT
  Sex: Female

DRUGS (2)
  1. RISPERDOL [Concomitant]
  2. SEROQUEL [Suspect]
     Active Substance: QUETIAPINE FUMARATE
     Route: 048
     Dates: end: 20151008

REACTIONS (2)
  - Sleep disorder [Unknown]
  - Abdominal discomfort [Unknown]
